FAERS Safety Report 9547810 (Version 1)
Quarter: 2013Q3

REPORT INFORMATION
  Report Type: Spontaneous
  Country: US (occurrence: US)
  Receive Date: 20130924
  Receipt Date: 20130924
  Transmission Date: 20140515
  Serious: No
  Sender: FDA-Public Use
  Company Number: US-PURDUE-USA-2011-0075687

PATIENT
  Sex: Female
  Weight: 68.03 kg

DRUGS (4)
  1. MORPHINE SULFATE (SIMILAR TO NDA 19-516) [Suspect]
     Indication: FIBROMYALGIA
     Dosage: 20 MG, BID
  2. CYMBALTA [Suspect]
     Indication: FIBROMYALGIA
     Dosage: 60 MG, DAILY
  3. KLONOPIN [Concomitant]
     Indication: SLEEP DISORDER
     Dosage: UNK UNK, SEE TEXT
  4. SYNTHROID [Concomitant]
     Indication: HYPOTHYROIDISM
     Dosage: 112 MCG, DAILY

REACTIONS (4)
  - Depressed mood [Unknown]
  - Feeling abnormal [Unknown]
  - Drug ineffective [Unknown]
  - Unevaluable event [Unknown]
